FAERS Safety Report 25902392 (Version 1)
Quarter: 2025Q4

REPORT INFORMATION
  Report Type: Spontaneous
  Country: US (occurrence: None)
  Receive Date: 20251009
  Receipt Date: 20251009
  Transmission Date: 20260117
  Serious: Yes (Other)
  Sender: FDA-CTU
  Company Number: None

PATIENT
  Age: 78 Year
  Sex: Female

DRUGS (7)
  1. ATORVASTATIN CALCIUM [Suspect]
     Active Substance: ATORVASTATIN CALCIUM
  2. HYDROCHLOROTHIAZIDE [Suspect]
     Active Substance: HYDROCHLOROTHIAZIDE
  3. DIURIL [Suspect]
     Active Substance: CHLOROTHIAZIDE
  4. LISINOPRIL [Suspect]
     Active Substance: LISINOPRIL
  5. GENTAMICIN [Suspect]
     Active Substance: GENTAMICIN
  6. METHOTREXATE [Suspect]
     Active Substance: METHOTREXATE
  7. CELEBREX [Suspect]
     Active Substance: CELECOXIB

REACTIONS (7)
  - Diabetes mellitus [None]
  - Cough [None]
  - Muscle spasms [None]
  - Anxiety [None]
  - Fatigue [None]
  - Headache [None]
  - Vision blurred [None]
